FAERS Safety Report 4872525-6 (Version None)
Quarter: 2005Q4

REPORT INFORMATION
  Report Type: 
  Country: None (occurrence: None)
  Receive Date: 20051230
  Receipt Date: 20051230
  Transmission Date: 20060501
  Serious: Yes (Death, Life-Threatening, Hospitalization)
  Sender: FDA-Public Use
  Company Number: None

PATIENT
  Sex: Male
  Weight: 94.3482 kg

DRUGS (1)
  1. AMIODARONE 200 MG EON LABS [Suspect]
     Indication: ATRIAL FIBRILLATION
     Dosage: 200 MG DAILY PO
     Route: 048
     Dates: start: 20021113, end: 20031212

REACTIONS (4)
  - ACTIVITIES OF DAILY LIVING IMPAIRED [None]
  - ASTHENIA [None]
  - DYSPNOEA [None]
  - PULMONARY TOXICITY [None]
